FAERS Safety Report 9962972 (Version 1)
Quarter: 2014Q1

REPORT INFORMATION
  Report Type: Spontaneous
  Country: FR (occurrence: FR)
  Receive Date: 20140305
  Receipt Date: 20140305
  Transmission Date: 20141002
  Serious: Yes (Hospitalization)
  Sender: FDA-Public Use
  Company Number: FR-PFIZER INC-2014059553

PATIENT
  Age: 84 Year
  Sex: Female

DRUGS (2)
  1. TENORMIN [Suspect]
     Indication: ATRIAL FIBRILLATION
     Dosage: 100 MG, DAILY
     Route: 048
     Dates: start: 20140131
  2. FLECAINE [Suspect]
     Indication: ATRIAL FIBRILLATION
     Dosage: 150 MG, DAILY
     Route: 048
     Dates: start: 20140131

REACTIONS (4)
  - Malaise [Recovered/Resolved]
  - Presyncope [Recovered/Resolved]
  - Bradycardia [Recovered/Resolved with Sequelae]
  - Sinus arrhythmia [Recovered/Resolved with Sequelae]
